FAERS Safety Report 4314376-7 (Version None)
Quarter: 2004Q1

REPORT INFORMATION
  Report Type: 
  Country: None (occurrence: None)
  Receive Date: 20040308
  Receipt Date: 20040303
  Transmission Date: 20041129
  Serious: Yes (Death)
  Sender: FDA-Public Use
  Company Number: KII-2001-0003122

PATIENT
  Sex: Female

DRUGS (2)
  1. OXYCONTIN [Suspect]
     Dosage: 800 MGQ12H
  2. OXYFAST CONCENTRATE 20 MG/ML (OXYCODONE HYDROCHLORIDE) ORAL SOLUTION [Suspect]

REACTIONS (1)
  - DEATH [None]
